FAERS Safety Report 6577420-2 (Version None)
Quarter: 2010Q1

REPORT INFORMATION
  Report Type: 
  Country: None (occurrence: None)
  Receive Date: 20100211
  Receipt Date: 20100205
  Transmission Date: 20100710
  Serious: Yes (Hospitalization, Other)
  Sender: FDA-Public Use
  Company Number: BR-BAYER-200815027LA

PATIENT
  Age: 56 Year
  Sex: Female

DRUGS (11)
  1. BETAFERON [Suspect]
     Indication: RELAPSING-REMITTING MULTIPLE SCLEROSIS
     Dosage: BETAJECT
     Route: 058
     Dates: start: 19960912
  2. TEGRETOL [Concomitant]
     Indication: MULTIPLE SCLEROSIS
     Dosage: UNIT DOSE: 400 MG
     Route: 048
     Dates: start: 19920101
  3. TRYPTANOL [Concomitant]
     Indication: NERVOUS SYSTEM DISORDER
     Dosage: UNIT DOSE: 75 MG
     Route: 048
     Dates: start: 19920101
  4. DIAMICRON [Concomitant]
     Indication: DIABETES MELLITUS
     Dosage: UNIT DOSE: 30 MG
     Route: 048
     Dates: start: 20060101
  5. CAPOTEN [Concomitant]
     Indication: HYPERTENSION
     Dosage: UNIT DOSE: 25 MG
     Route: 048
     Dates: start: 20040101
  6. DIOVAN [Concomitant]
     Indication: HYPERTENSION
     Dosage: 1 TABLET/DAY
     Route: 048
     Dates: start: 20080601
  7. HIDRION [Concomitant]
     Indication: HYPERTENSION
     Dosage: 1 TABLET/DAY
     Route: 048
     Dates: start: 19980101
  8. AZUKON [Concomitant]
     Indication: DIABETES MELLITUS
     Dosage: AS USED: 30 MG  UNIT DOSE: 30 MG
     Route: 048
     Dates: start: 19960101
  9. HYGROTON [Concomitant]
     Indication: BLOOD PRESSURE ABNORMAL
     Dosage: TOTAL DAILY DOSE: 50 MG  UNIT DOSE: 50 MG
     Route: 048
     Dates: start: 20070101
  10. CAPTOPRIL [Concomitant]
     Indication: BLOOD PRESSURE ABNORMAL
     Dosage: AS USED: 25 MG  UNIT DOSE: 25 MG
     Route: 048
     Dates: start: 20050101
  11. METFORMIN HCL [Concomitant]
     Indication: DIABETES MELLITUS
     Dosage: TOTAL DAILY DOSE: 500 MG  UNIT DOSE: 500 MG
     Route: 048
     Dates: start: 20090101

REACTIONS (25)
  - ABDOMINAL PAIN UPPER [None]
  - ARRHYTHMIA [None]
  - BLOOD PRESSURE INCREASED [None]
  - DISLOCATION OF VERTEBRA [None]
  - FALL [None]
  - GAIT DISTURBANCE [None]
  - HERNIA [None]
  - IMMUNE SYSTEM DISORDER [None]
  - INJECTION SITE PAIN [None]
  - INJECTION SITE SWELLING [None]
  - INTERVERTEBRAL DISC PROTRUSION [None]
  - JOINT LOCK [None]
  - LIMB CRUSHING INJURY [None]
  - LUMBAR VERTEBRAL FRACTURE [None]
  - MULTIPLE SCLEROSIS [None]
  - MUSCULAR WEAKNESS [None]
  - NAUSEA [None]
  - OEDEMA PERIPHERAL [None]
  - PAIN [None]
  - PAIN IN EXTREMITY [None]
  - PROCEDURAL PAIN [None]
  - SPEECH DISORDER [None]
  - SPINAL DISORDER [None]
  - TACHYCARDIA [None]
  - URINARY TRACT INFECTION [None]
